FAERS Safety Report 20370076 (Version 1)
Quarter: 2022Q1

REPORT INFORMATION
  Report Type: Spontaneous
  Country: US (occurrence: None)
  Receive Date: 20220122
  Receipt Date: 20220122
  Transmission Date: 20220423
  Serious: Yes (Life-Threatening, Other)
  Sender: FDA-Public Use
  Company Number: None

PATIENT
  Age: 34 Year
  Sex: Male
  Weight: 83.25 kg

DRUGS (1)
  1. FINASTERIDE\HYDROCORTISONE\MINOXIDIL\TRETINOIN [Suspect]
     Active Substance: FINASTERIDE\HYDROCORTISONE\MINOXIDIL\TRETINOIN
     Indication: Androgenetic alopecia
     Dosage: OTHER QUANTITY : 2 OUNCE(S);?FREQUENCY : DAILY;?
     Route: 061
     Dates: start: 20220103, end: 20220107

REACTIONS (16)
  - Feeling abnormal [None]
  - Disturbance in attention [None]
  - Derealisation [None]
  - Dizziness [None]
  - Tinnitus [None]
  - Paraesthesia [None]
  - Vision blurred [None]
  - Anhedonia [None]
  - Penis disorder [None]
  - Testicular disorder [None]
  - Emotional disorder [None]
  - Suicidal ideation [None]
  - Exercise tolerance decreased [None]
  - Fatigue [None]
  - Lid sulcus deepened [None]
  - Unevaluable event [None]

NARRATIVE: CASE EVENT DATE: 20220107
